FAERS Safety Report 5906204-0 (Version None)
Quarter: 2008Q4

REPORT INFORMATION
  Report Type: 
  Country: None (occurrence: None)
  Receive Date: 20081002
  Receipt Date: 20080922
  Transmission Date: 20090506
  Serious: Yes (Hospitalization)
  Sender: FDA-Public Use
  Company Number: MX-PFIZER INC-2006101692

PATIENT
  Sex: Male
  Weight: 77 kg

DRUGS (4)
  1. SU-011,248 [Suspect]
     Indication: RENAL CANCER
     Route: 048
     Dates: start: 20060718, end: 20060811
  2. RANITIDINE [Concomitant]
     Route: 048
     Dates: start: 20060707
  3. RAMIPRIL/HYDROCHLOROTHIAZIDE [Concomitant]
     Route: 048
     Dates: start: 20060726, end: 20060811
  4. BONADOXIN [Concomitant]
     Route: 048
     Dates: start: 20060811, end: 20060816

REACTIONS (3)
  - GASTROINTESTINAL TOXICITY [None]
  - OEDEMA [None]
  - THROMBOCYTOPENIA [None]
